FAERS Safety Report 5096712-X (Version None)
Quarter: 2006Q3

REPORT INFORMATION
  Report Type: 
  Country: None (occurrence: None)
  Receive Date: 20060831
  Receipt Date: 20060823
  Transmission Date: 20061208
  Serious: Yes (Death)
  Sender: FDA-Public Use
  Company Number: 2006-04640

PATIENT
  Age: 46 Year
  Sex: Male

DRUGS (12)
  1. FENTANYL CITRATE [Suspect]
     Indication: PAIN
     Dosage: SEE IMAGE
     Route: 062
     Dates: start: 20050915, end: 20051028
  2. FENTANYL CITRATE [Suspect]
     Indication: PAIN
     Dosage: SEE IMAGE
     Route: 062
     Dates: start: 20051029, end: 20051123
  3. FLUCONAZOLE [Suspect]
     Indication: ORAL FUNGAL INFECTION
     Dosage: 50 MG, DAIY, ORAL
     Route: 048
     Dates: start: 20051120, end: 20051123
  4. MORPHINE [Concomitant]
  5. DICLOFENAC (DICLOFENAC) [Concomitant]
  6. ACETAMINOPHEN [Concomitant]
  7. OXAZEPAM [Concomitant]
  8. ZOLPIDEM TARTRATE [Concomitant]
  9. NYSTATINE LABAZ [Concomitant]
  10. LIDOCAINE (ORAL SPRAY) (LIDOCAINE) [Concomitant]
  11. LACTULOSE [Concomitant]
  12. METOCLOPRAMIDE [Concomitant]

REACTIONS (4)
  - DRUG INTERACTION [None]
  - DRUG TOXICITY [None]
  - RESPIRATORY DEPRESSION [None]
  - SHOCK [None]
